FAERS Safety Report 7409173-X (Version None)
Quarter: 2011Q2

REPORT INFORMATION
  Report Type: 
  Country: None (occurrence: None)
  Receive Date: 20110412
  Receipt Date: 20110331
  Transmission Date: 20111010
  Serious: Yes (Hospitalization)
  Sender: FDA-Public Use
  Company Number: CA-ROCHE-769152

PATIENT
  Sex: Male
  Weight: 72 kg

DRUGS (13)
  1. BEVACIZUMAB [Suspect]
     Route: 042
     Dates: start: 20110302
  2. IRINOTECAN [Suspect]
     Route: 042
     Dates: start: 20110302
  3. PARIET [Concomitant]
     Dates: start: 20080610
  4. EMEND [Concomitant]
     Dates: start: 20081015
  5. STEMETIL [Concomitant]
     Dates: start: 20081015
  6. FRAGMIN [Concomitant]
     Dates: start: 20081103
  7. CAPECITABINE [Suspect]
     Route: 048
     Dates: start: 20110304
  8. PANTOLOC [Concomitant]
     Dates: start: 20101227
  9. OXALIPLATIN [Suspect]
     Route: 042
     Dates: start: 20110302
  10. ZOFRAN [Concomitant]
     Dates: start: 20081015
  11. IMODIUM [Concomitant]
     Dates: start: 20090613
  12. PEPCID [Concomitant]
     Dates: start: 20101227
  13. SINGULAIR [Concomitant]
     Dates: start: 20081110

REACTIONS (2)
  - NEUTROPENIA [None]
  - FALL [None]
